FAERS Safety Report 9279034 (Version 1)
Quarter: 2013Q2

REPORT INFORMATION
  Report Type: Spontaneous
  Country: US (occurrence: US)
  Receive Date: 20130508
  Receipt Date: 20130508
  Transmission Date: 20140414
  Serious: Yes (Hospitalization, Other)
  Sender: FDA-Public Use
  Company Number: US-JNJFOC-20130417448

PATIENT
  Sex: Male
  Weight: 167.83 kg

DRUGS (9)
  1. REMICADE [Suspect]
     Indication: RHEUMATOID ARTHRITIS
     Dosage: START DATE: APPROXIMATELY 1999 (REPORTED AS PATIENT ON DRUG FOR ABOUT 14 YEARS)
     Route: 042
     Dates: end: 2013
  2. METHOTREXATE [Suspect]
     Indication: PRODUCT USED FOR UNKNOWN INDICATION
     Route: 065
  3. FUROSEMIDE [Concomitant]
     Indication: MYOCARDIAL INFARCTION
     Route: 048
  4. KLOR-CON [Concomitant]
     Indication: MEDICAL DIET
     Dosage: FREQUENCY: DAILY
     Route: 048
  5. SIMVASTATIN [Concomitant]
     Indication: BLOOD CHOLESTEROL
     Route: 048
  6. ASPIRIN [Concomitant]
     Indication: MYOCARDIAL INFARCTION
     Route: 048
  7. LISINOPRIL [Concomitant]
     Indication: MYOCARDIAL INFARCTION
     Route: 048
  8. FAMOTIDINE [Concomitant]
     Indication: PRODUCT USED FOR UNKNOWN INDICATION
     Dosage: DOSE: 20 (UNITS UNSPECIFIED)
     Route: 048
  9. PLAVIX [Concomitant]
     Route: 065
     Dates: end: 2012

REACTIONS (5)
  - Pain [Not Recovered/Not Resolved]
  - Chest pain [Recovered/Resolved]
  - Liver disorder [Not Recovered/Not Resolved]
  - Cholecystitis infective [Recovered/Resolved]
  - Myocardial infarction [Unknown]
